FAERS Safety Report 5699095-7 (Version None)
Quarter: 2008Q2

REPORT INFORMATION
  Report Type: 
  Country: None (occurrence: None)
  Receive Date: 20080331
  Receipt Date: 20070809
  Transmission Date: 20081010
  Serious: Yes (Hospitalization)
  Sender: FDA-Public Use
  Company Number: 2007VX002079

PATIENT
  Age: 67 Year
  Sex: Female

DRUGS (4)
  1. TASMAR [Suspect]
     Indication: PARKINSON'S DISEASE
     Dosage: 100 MG;TID;PO ; 200 MG;TID;PO ; 100 MG;BID;PO
     Route: 048
     Dates: start: 20070531, end: 20070626
  2. TASMAR [Suspect]
     Indication: PARKINSON'S DISEASE
     Dosage: 100 MG;TID;PO ; 200 MG;TID;PO ; 100 MG;BID;PO
     Route: 048
     Dates: start: 20070627, end: 20070725
  3. TASMAR [Suspect]
     Indication: PARKINSON'S DISEASE
     Dosage: 100 MG;TID;PO ; 200 MG;TID;PO ; 100 MG;BID;PO
     Route: 048
     Dates: start: 20070726, end: 20070730
  4. SYNTHROID [Concomitant]

REACTIONS (1)
  - DIARRHOEA [None]
